FAERS Safety Report 8652526 (Version 3)
Quarter: 2012Q4

REPORT INFORMATION
  Report Type: 
  Country: DE (occurrence: DE)
  Receive Date: 20120706
  Receipt Date: 20121009
  Transmission Date: 20130627
  Serious: Yes (Other)
  Sender: FDA-Public Use
  Company Number: DE-ROCHE-1081040

PATIENT
  Age: 18 None
  Sex: Female
  Weight: 70 kg

DRUGS (2)
  1. LARIAM [Suspect]
     Indication: MALARIA PROPHYLAXIS
     Route: 065
     Dates: start: 2011
  2. ARTEMETHER [Suspect]
     Indication: MALARIA

REACTIONS (8)
  - Agoraphobia [Not Recovered/Not Resolved]
  - Dizziness [Not Recovered/Not Resolved]
  - Fatigue [Not Recovered/Not Resolved]
  - Fear [Unknown]
  - Malaria [Unknown]
  - Disturbance in attention [Unknown]
  - Performance status decreased [Not Recovered/Not Resolved]
  - Fatigue [Unknown]
